FAERS Safety Report 4640737-2 (Version None)
Quarter: 2005Q2

REPORT INFORMATION
  Report Type: 
  Country: None (occurrence: None)
  Receive Date: 20050419
  Receipt Date: 20050404
  Transmission Date: 20051028
  Serious: Yes (Death)
  Sender: FDA-Public Use
  Company Number: 10799

PATIENT
  Age: 56 Year
  Sex: Female

DRUGS (3)
  1. VINCRISTINE [Suspect]
     Indication: ACUTE LYMPHOCYTIC LEUKAEMIA
     Dosage: IV
     Route: 042
     Dates: start: 20030612, end: 20030612
  2. ASPARAGINASE [Suspect]
     Indication: ACUTE LYMPHOCYTIC LEUKAEMIA
     Dosage: IV
     Route: 042
     Dates: start: 20030612, end: 20030612
  3. CYCLOPHOSPHAMIDE [Suspect]
     Indication: ACUTE LYMPHOCYTIC LEUKAEMIA
     Dosage: IV
     Route: 042
     Dates: start: 20030612, end: 20030612

REACTIONS (10)
  - ACUTE PULMONARY OEDEMA [None]
  - AGRANULOCYTOSIS [None]
  - CHOLESTASIS [None]
  - CLOSTRIDIUM DIFFICILE TOXIN TEST POSITIVE [None]
  - COLITIS [None]
  - DIARRHOEA [None]
  - PATHOGEN RESISTANCE [None]
  - PYREXIA [None]
  - RENAL FAILURE ACUTE [None]
  - SEPTIC SHOCK [None]
